FAERS Safety Report 14384813 (Version 2)
Quarter: 2018Q2

REPORT INFORMATION
  Report Type: Spontaneous
  Country: US (occurrence: US)
  Receive Date: 20180115
  Receipt Date: 20180410
  Transmission Date: 20180711
  Serious: Yes (Hospitalization, Disabling)
  Sender: FDA-Public Use
  Company Number: US-JNJFOC-20180114552

PATIENT
  Age: 48 Year
  Sex: Male

DRUGS (1)
  1. XARELTO [Suspect]
     Active Substance: RIVAROXABAN
     Indication: DEEP VEIN THROMBOSIS
     Route: 048
     Dates: start: 20150509, end: 20160120

REACTIONS (6)
  - Peripheral ischaemia [Unknown]
  - Post procedural haemorrhage [Unknown]
  - Thrombocytopenia [Unknown]
  - Leg amputation [Unknown]
  - Acute kidney injury [Recovered/Resolved]
  - Peripheral artery occlusion [Unknown]

NARRATIVE: CASE EVENT DATE: 201601
